FAERS Safety Report 12052786 (Version 2)
Quarter: 2016Q1

REPORT INFORMATION
  Report Type: Spontaneous
  Country: None (occurrence: US)
  Receive Date: 20160209
  Receipt Date: 20160218
  Transmission Date: 20160526
  Serious: Yes (Other)
  Sender: FDA-Public Use
  Company Number: US-TEVA-632151USA

PATIENT
  Age: 27 Year
  Sex: Female

DRUGS (1)
  1. ZECUITY [Suspect]
     Active Substance: SUMATRIPTAN SUCCINATE
     Dosage: 6.5 MG OVER 4 HOURS
     Route: 062
     Dates: start: 20160201

REACTIONS (6)
  - Injection site paraesthesia [Unknown]
  - Drug ineffective [Unknown]
  - Application site burn [Unknown]
  - Application site erythema [Unknown]
  - Application site rash [Unknown]
  - Device leakage [Unknown]

NARRATIVE: CASE EVENT DATE: 20160201
